FAERS Safety Report 25760643 (Version 2)
Quarter: 2025Q3

REPORT INFORMATION
  Report Type: Spontaneous
  Country: GB (occurrence: GB)
  Receive Date: 20250904
  Receipt Date: 20250910
  Transmission Date: 20251021
  Serious: Yes (Other)
  Sender: SK LIFE SCIENCE
  Company Number: None

PATIENT

DRUGS (11)
  1. XCOPRI [Suspect]
     Active Substance: CENOBAMATE
     Indication: Epilepsy
     Dosage: 50MG ONCE AT NIGHT
     Route: 048
     Dates: start: 20250712
  2. XCOPRI [Suspect]
     Active Substance: CENOBAMATE
     Dosage: 25.0 MILLIGRAM(S) (25 MILLIGRAM(S), 1 IN 1 DAY)
     Route: 048
     Dates: start: 20250726
  3. XCOPRI [Suspect]
     Active Substance: CENOBAMATE
     Dosage: 50.0 MILLIGRAM(S) (50 MILLIGRAM(S), 1 IN 1 DAY)
     Route: 048
     Dates: start: 20250809, end: 20250815
  4. FLUCLOXACILLIN [Concomitant]
     Active Substance: FLUCLOXACILLIN
     Indication: Mastitis
     Route: 065
     Dates: start: 20250708, end: 20250819
  5. METRONIDAZOLE [Concomitant]
     Active Substance: METRONIDAZOLE
     Indication: Mastitis
     Route: 065
     Dates: start: 20250708, end: 20250819
  6. PHENOBARBITAL [Concomitant]
     Active Substance: PHENOBARBITAL
     Indication: Epilepsy
     Route: 065
  7. TEGRETOL [Concomitant]
     Active Substance: CARBAMAZEPINE
     Indication: Epilepsy
     Route: 065
  8. AMOXICILLIN\CLAVULANATE POTASSIUM [Concomitant]
     Active Substance: AMOXICILLIN\CLAVULANATE POTASSIUM
     Indication: Infection
     Route: 065
     Dates: start: 20250708, end: 20250718
  9. CALCI D [Concomitant]
     Indication: Product used for unknown indication
     Route: 065
  10. LANSOPRAZOLE [Concomitant]
     Active Substance: LANSOPRAZOLE
     Indication: Product used for unknown indication
     Route: 065
  11. PAROXETINE [Concomitant]
     Active Substance: PAROXETINE
     Indication: Product used for unknown indication
     Route: 065

REACTIONS (3)
  - Contusion [Recovering/Resolving]
  - Rash [Recovering/Resolving]
  - Pruritus [Recovering/Resolving]

NARRATIVE: CASE EVENT DATE: 20250808
